FAERS Safety Report 19954794 (Version 1)
Quarter: 2021Q4

REPORT INFORMATION
  Report Type: Spontaneous
  Country: CA (occurrence: CA)
  Receive Date: 20211014
  Receipt Date: 20211014
  Transmission Date: 20220303
  Serious: Yes (Life-Threatening, Hospitalization)
  Sender: FDA-Public Use
  Company Number: CA-TEVA-2021-CA-1964806

PATIENT
  Age: 9 Year
  Sex: Male
  Weight: 35 kg

DRUGS (10)
  1. METHOTREXATE [Suspect]
     Active Substance: METHOTREXATE
     Indication: Lymphoma
     Route: 042
  2. METHOTREXATE [Suspect]
     Active Substance: METHOTREXATE
     Dosage: FREQUENCY: ONCE
     Route: 037
  3. CYTARABINE [Suspect]
     Active Substance: CYTARABINE
     Indication: Lymphoma
     Dosage: FREQUENCY: ONCE
     Route: 037
  4. CYTARABINE [Suspect]
     Active Substance: CYTARABINE
     Route: 042
  5. RITUXAN [Suspect]
     Active Substance: RITUXIMAB
     Indication: Lymphoma
     Dosage: FREQUENCY: ONCE
     Route: 042
  6. FLUCONAZOLE [Concomitant]
     Active Substance: FLUCONAZOLE
  7. LEUCOVORIN [Concomitant]
     Active Substance: LEUCOVORIN
  8. ONDANSETRON [Concomitant]
     Active Substance: ONDANSETRON
  9. POLYETHYLENE GLYCOLS [Concomitant]
     Active Substance: POLYETHYLENE GLYCOLS
  10. SENNOSIDES A AND B [Concomitant]
     Active Substance: SENNOSIDES A AND B

REACTIONS (2)
  - Aplastic anaemia [Recovered/Resolved]
  - Febrile neutropenia [Recovered/Resolved]
